FAERS Safety Report 19033543 (Version 3)
Quarter: 2021Q4

REPORT INFORMATION
  Report Type: Spontaneous
  Country: US (occurrence: None)
  Receive Date: 20210320
  Receipt Date: 20211123
  Transmission Date: 20220303
  Serious: Yes (Other)
  Sender: FDA-Public Use
  Company Number: 2021A145361

PATIENT
  Age: 41 Year
  Sex: Female
  Weight: 58.1 kg

DRUGS (39)
  1. NEXIUM [Suspect]
     Active Substance: ESOMEPRAZOLE MAGNESIUM
     Indication: Gastrooesophageal reflux disease
     Route: 048
     Dates: start: 2011, end: 2018
  2. PRILOSEC [Suspect]
     Active Substance: OMEPRAZOLE MAGNESIUM
     Indication: Gastrooesophageal reflux disease
     Dosage: 20.0MG UNKNOWN
     Route: 048
     Dates: start: 2011, end: 2018
  3. PRILOSEC [Suspect]
     Active Substance: OMEPRAZOLE MAGNESIUM
     Indication: Gastrooesophageal reflux disease
     Dosage: GENERIC20.0MG UNKNOWN
     Route: 065
     Dates: start: 2012
  4. PRILOSEC OTC [Suspect]
     Active Substance: OMEPRAZOLE MAGNESIUM
     Indication: Gastrooesophageal reflux disease
     Dosage: RECOMENDED DOSAGE
     Route: 048
     Dates: start: 2011, end: 2018
  5. PANTOPRAZOLE [Suspect]
     Active Substance: PANTOPRAZOLE
     Indication: Gastrooesophageal reflux disease
     Dosage: 40.0MG UNKNOWN
     Route: 065
     Dates: start: 2012
  6. EPHEDRA SPP./ZINGIBER OFFICINALE RHIZOME/PAULLINIA CUPANA/SALIX ALBA B [Concomitant]
     Indication: Hypothyroidism
  7. TRAMADOL [Concomitant]
     Active Substance: TRAMADOL
  8. ACETAMINOPHEN [Concomitant]
     Active Substance: ACETAMINOPHEN
  9. ONDANSETRON [Concomitant]
     Active Substance: ONDANSETRON
  10. PROMETHAZINE [Concomitant]
     Active Substance: PROMETHAZINE HYDROCHLORIDE
  11. SODIUM CHLORIDE [Concomitant]
     Active Substance: SODIUM CHLORIDE
  12. FLUTICASONE [Concomitant]
     Active Substance: FLUTICASONE
  13. ALBUTEROL [Concomitant]
     Active Substance: ALBUTEROL
  14. LISINOPRIL [Concomitant]
     Active Substance: LISINOPRIL
     Indication: Hypertension
  15. SUCRALFATE [Concomitant]
     Active Substance: SUCRALFATE
  16. IPRATROPIUM [Concomitant]
     Active Substance: IPRATROPIUM
  17. RANITIDINE [Concomitant]
     Active Substance: RANITIDINE
  18. TORSEMIDE [Concomitant]
     Active Substance: TORSEMIDE
  19. FLOVENT HFA [Concomitant]
     Active Substance: FLUTICASONE PROPIONATE
  20. NORETHINDRONE [Concomitant]
     Active Substance: NORETHINDRONE
  21. BENZONATATE [Concomitant]
     Active Substance: BENZONATATE
  22. AZITHROMYCIN [Concomitant]
     Active Substance: AZITHROMYCIN
  23. AMOXICILLIN [Concomitant]
     Active Substance: AMOXICILLIN
  24. HYDROCODONE [Concomitant]
     Active Substance: HYDROCODONE
  25. ADVAIR HFA [Concomitant]
     Active Substance: FLUTICASONE PROPIONATE\SALMETEROL XINAFOATE
  26. GLYBURIDE [Concomitant]
     Active Substance: GLYBURIDE
  27. LORAZEPAM [Concomitant]
     Active Substance: LORAZEPAM
  28. CARVEDILOL [Concomitant]
     Active Substance: CARVEDILOL
     Indication: Hypertension
  29. CYCLOBENZAPRINE [Concomitant]
     Active Substance: CYCLOBENZAPRINE
  30. ATORVASTATIN [Concomitant]
     Active Substance: ATORVASTATIN
  31. PREDNISONE [Concomitant]
     Active Substance: PREDNISONE
  32. ADVIL [Concomitant]
     Active Substance: IBUPROFEN
     Indication: Pain
     Dates: start: 2012, end: 2021
  33. TYLENOL [Concomitant]
     Active Substance: ACETAMINOPHEN
     Indication: Pyrexia
     Dates: start: 2012, end: 2021
  34. TYLENOL [Concomitant]
     Active Substance: ACETAMINOPHEN
     Indication: Pain
     Dates: start: 2012, end: 2021
  35. FAMOTIDINE [Concomitant]
     Active Substance: FAMOTIDINE
  36. PEPCID [Concomitant]
     Active Substance: FAMOTIDINE
  37. ROLAIDS [Concomitant]
     Active Substance: CALCIUM CARBONATE\MAGNESIUM HYDROXIDE
     Dosage: AS NEEDED
     Dates: start: 2015, end: 2020
  38. PEPTO-BISMOL [Concomitant]
     Active Substance: BISMUTH SUBSALICYLATE
     Dosage: AS NEEDED
     Dates: start: 2015, end: 2020
  39. ZOFRAN [Concomitant]
     Active Substance: ONDANSETRON HYDROCHLORIDE
     Dosage: AS NEEDED
     Dates: start: 2015, end: 2020

REACTIONS (4)
  - Chronic kidney disease [Not Recovered/Not Resolved]
  - Acute kidney injury [Not Recovered/Not Resolved]
  - Nephrogenic anaemia [Unknown]
  - Chronic kidney disease-mineral and bone disorder [Unknown]

NARRATIVE: CASE EVENT DATE: 20160101
